APPROVED DRUG PRODUCT: LORAZEPAM
Active Ingredient: LORAZEPAM
Strength: 2MG/ML
Dosage Form/Route: CONCENTRATE;ORAL
Application: A200169 | Product #001
Applicant: HIKMA PHARMACEUTICALS USA INC
Approved: Jan 30, 2012 | RLD: No | RS: No | Type: DISCN